FAERS Safety Report 19818048 (Version 7)
Quarter: 2022Q1

REPORT INFORMATION
  Report Type: Report from Study
  Country: CO (occurrence: CO)
  Receive Date: 20210911
  Receipt Date: 20220319
  Transmission Date: 20220424
  Serious: Yes (Hospitalization, Other)
  Sender: FDA-Public Use
  Company Number: CO-ABBVIE-21K-036-4074195-00

PATIENT
  Age: 64 Year
  Sex: Male
  Weight: 61 kg

DRUGS (2)
  1. ZEMPLAR [Suspect]
     Active Substance: PARICALCITOL
     Indication: Hyperparathyroidism secondary
     Route: 042
     Dates: start: 20201228, end: 20210810
  2. ZEMPLAR [Suspect]
     Active Substance: PARICALCITOL
     Indication: Chronic kidney disease

REACTIONS (13)
  - Blue toe syndrome [Recovering/Resolving]
  - Cardiovascular disorder [Not Recovered/Not Resolved]
  - Diabetic foot [Recovering/Resolving]
  - Toe amputation [Recovering/Resolving]
  - Incision site impaired healing [Recovering/Resolving]
  - Wound dehiscence [Not Recovered/Not Resolved]
  - Postoperative wound infection [Recovered/Resolved]
  - Leg amputation [Recovered/Resolved]
  - Visual impairment [Recovering/Resolving]
  - Pain in extremity [Recovering/Resolving]
  - Blood potassium abnormal [Recovering/Resolving]
  - Blood phosphorus abnormal [Recovering/Resolving]
  - Anaemia [Not Recovered/Not Resolved]

NARRATIVE: CASE EVENT DATE: 20210901
